FAERS Safety Report 7675890-X (Version None)
Quarter: 2011Q3

REPORT INFORMATION
  Report Type: 
  Country: None (occurrence: None)
  Receive Date: 20110811
  Receipt Date: 20110804
  Transmission Date: 20111222
  Serious: Yes (Hospitalization)
  Sender: FDA-Public Use
  Company Number: US-BIOGENIDEC-2011BI027416

PATIENT
  Age: 52 Year
  Sex: Male

DRUGS (4)
  1. AVONEX [Concomitant]
     Indication: MULTIPLE SCLEROSIS
     Route: 030
     Dates: start: 19970701
  2. TYSABRI [Suspect]
     Indication: MULTIPLE SCLEROSIS
     Route: 042
     Dates: start: 20071221, end: 20110602
  3. VITAMIN D [Concomitant]
  4. GINGER ROOT [Concomitant]
     Indication: VERTIGO

REACTIONS (4)
  - PERIOSTITIS [None]
  - MYOSITIS [None]
  - URINARY TRACT INFECTION [None]
  - SINUSITIS [None]
